FAERS Safety Report 13042434 (Version 2)
Quarter: 2017Q1

REPORT INFORMATION
  Report Type: Spontaneous
  Country: US (occurrence: US)
  Receive Date: 20161219
  Receipt Date: 20170209
  Transmission Date: 20170428
  Serious: Yes (Death, Hospitalization, Other)
  Sender: FDA-Public Use
  Company Number: US-SMITH AND NEPHEW, INC-2016SMT01095

PATIENT
  Age: 86 Year
  Sex: Female

DRUGS (33)
  1. VITAMIN B6 [Concomitant]
     Active Substance: PYRIDOXINE HYDROCHLORIDE
  2. VITAMIN B100 [Concomitant]
  3. MAGNESIUM [Concomitant]
     Active Substance: MAGNESIUM
  4. POMEGRANATE [Concomitant]
     Active Substance: POMEGRANATE
  5. POLICOSANOL [Concomitant]
  6. VITAMIN B-2 [Concomitant]
  7. FOLIC ACID. [Concomitant]
     Active Substance: FOLIC ACID
  8. COENZYME Q10 UBIQUINOL [Concomitant]
  9. ALPHA LIPOIC ACID [Concomitant]
     Active Substance: .ALPHA.-LIPOIC ACID
  10. CALCIUM WITH VITAMIN D [Concomitant]
     Active Substance: CALCIUM\VITAMIN D
  11. CAROTENOIDS MIXED [Concomitant]
  12. VITAMIN B12 [Concomitant]
     Active Substance: CYANOCOBALAMIN
  13. SELENIUM [Concomitant]
     Active Substance: SELENIUM
  14. LYCOPENE [Concomitant]
     Active Substance: LYCOPENE
  15. COLLAGENASE SANTYL [Suspect]
     Active Substance: COLLAGENASE CLOSTRIDIUM HISTOLYTICUM
     Indication: ULCER
  16. COCONUT OIL [Concomitant]
     Active Substance: COCONUT OIL
  17. VITAMIN E [Concomitant]
     Active Substance: .ALPHA.-TOCOPHEROL
  18. POTASSIUM GLUCONATE [Concomitant]
     Active Substance: POTASSIUM GLUCONATE
  19. CHROMIUM [Concomitant]
     Active Substance: CHROMIC CHLORIDE\CHROMIUM
  20. DIURETIC 1 LOOP [Concomitant]
  21. COD LIVER OIL [Concomitant]
     Active Substance: COD LIVER OIL
  22. GINSANA [Concomitant]
  23. KRILL OIL [Concomitant]
     Active Substance: DIETARY SUPPLEMENT
  24. GSH-3 [Concomitant]
     Dosage: 2 DOSAGE UNITS, 1X/DAY
  25. CURCUMIN [Concomitant]
     Active Substance: CURCUMIN
  26. ZINC. [Concomitant]
     Active Substance: ZINC
  27. VITAMIN C [Concomitant]
     Active Substance: ASCORBIC ACID
  28. VITAMIN D3 [Concomitant]
     Active Substance: CHOLECALCIFEROL
  29. TRIMETHYLGLYCINE [Concomitant]
  30. GLUCOSAMINE CHONDROITIN [Concomitant]
     Active Substance: CHONDROITIN SULFATE (BOVINE)\GLUCOSAMINE HYDROCHLORIDE
  31. FENUGREEK [Concomitant]
     Active Substance: FENUGREEK SEED
  32. CINNAMON. [Concomitant]
     Active Substance: CINNAMON
  33. LUTEIN [Concomitant]
     Active Substance: LUTEIN

REACTIONS (3)
  - Breast cancer [Fatal]
  - Upper limb fracture [Unknown]
  - Hip fracture [Unknown]

NARRATIVE: CASE EVENT DATE: 20160115
